FAERS Safety Report 7930527-7 (Version None)
Quarter: 2011Q4

REPORT INFORMATION
  Report Type: 
  Country: None (occurrence: None)
  Receive Date: 20111121
  Receipt Date: 20111107
  Transmission Date: 20120403
  Serious: Yes (Hospitalization)
  Sender: FDA-Public Use
  Company Number: US-ROCHE-1012255

PATIENT

DRUGS (10)
  1. HERCEPTIN [Suspect]
     Indication: PRODUCT USED FOR UNKNOWN INDICATION
     Dosage: OVER 30 MIN QW ON DAY 1, FOR 52 WEEKS STARTING ON WEEK 13
     Route: 042
     Dates: start: 20040227
  2. PACLITAXEL [Suspect]
     Indication: PRODUCT USED FOR UNKNOWN INDICATION
     Dosage: OVER 1 HR QW ON DAY 1, FOR 12 WEEKS STARTING ON WEEK 13.
     Route: 042
  3. TAMOXIFEN CITRATE [Suspect]
     Indication: PRODUCT USED FOR UNKNOWN INDICATION
     Dosage: QD FOR 5 YEARS
     Route: 048
  4. LETROZOLE [Suspect]
     Indication: PRODUCT USED FOR UNKNOWN INDICATION
     Dosage: DAILY
  5. HERCEPTIN [Suspect]
     Dosage: OVER 90 MIN AS THE FIRST DOSE
     Route: 042
  6. EXEMESTANE [Suspect]
     Indication: PRODUCT USED FOR UNKNOWN INDICATION
     Dosage: DALIY
  7. ANASTROZOLE [Suspect]
     Indication: PRODUCT USED FOR UNKNOWN INDICATION
     Dosage: DAILY
  8. TARCEVA [Suspect]
     Indication: PRODUCT USED FOR UNKNOWN INDICATION
     Route: 048
     Dates: start: 20060207
  9. DOXORUBICIN HCL [Suspect]
     Indication: PRODUCT USED FOR UNKNOWN INDICATION
     Dosage: IVP ON DAY 1, Q21D FOR 4 CYCLES
  10. CYCLOPHOSPHAMIDE [Suspect]
     Indication: PRODUCT USED FOR UNKNOWN INDICATION
     Dosage: OVER 30 MIN ON DAY 1, Q21D FOR 4 CYCLES.
     Route: 042

REACTIONS (5)
  - DIZZINESS [None]
  - PERIPHERAL SENSORY NEUROPATHY [None]
  - PNEUMOTHORAX [None]
  - HYPERTENSION [None]
  - CEREBRAL ISCHAEMIA [None]
